FAERS Safety Report 14439508 (Version 2)
Quarter: 2018Q1

REPORT INFORMATION
  Report Type: Report from Study
  Country: DE (occurrence: DE)
  Receive Date: 20180125
  Receipt Date: 20180130
  Transmission Date: 20180509
  Serious: Yes (Hospitalization)
  Sender: FDA-Public Use
  Company Number: DE-EMD SERONO-E2B_90015315

PATIENT
  Age: 65 Year
  Sex: Female
  Weight: 54 kg

DRUGS (8)
  1. DUROGESIC [Concomitant]
     Active Substance: FENTANYL
     Indication: LUNG INFECTION
     Dosage: 12 MICROGRAMS/HR
     Route: 062
     Dates: start: 20180102
  2. AVELUMAB [Suspect]
     Active Substance: AVELUMAB
     Indication: OESOPHAGEAL ADENOCARCINOMA
     Route: 042
     Dates: start: 20171212, end: 20180117
  3. TAVANIC [Concomitant]
     Active Substance: LEVOFLOXACIN
     Indication: PNEUMONIA
     Route: 048
     Dates: start: 20171120, end: 20171127
  4. ROCEPHINE [Concomitant]
     Active Substance: CEFTRIAXONE SODIUM
     Indication: LUNG INFECTION
     Route: 042
     Dates: start: 20171227, end: 20180102
  5. FLUOROURACIL. [Suspect]
     Active Substance: FLUOROURACIL
     Indication: OESOPHAGEAL ADENOCARCINOMA
     Route: 042
     Dates: start: 20170905, end: 20171114
  6. PARACETAMOL [Concomitant]
     Active Substance: ACETAMINOPHEN
     Indication: LUNG INFECTION
     Route: 042
     Dates: start: 20180103, end: 20180103
  7. OXALIPLATIN. [Suspect]
     Active Substance: OXALIPLATIN
     Indication: OESOPHAGEAL ADENOCARCINOMA
     Route: 042
     Dates: start: 20170905, end: 20171114
  8. LEUCOVORIN                         /00566701/ [Concomitant]
     Active Substance: LEUCOVORIN
     Indication: OESOPHAGEAL ADENOCARCINOMA
     Route: 042
     Dates: start: 20170905, end: 20171114

REACTIONS (1)
  - Pneumonitis [Recovered/Resolved]

NARRATIVE: CASE EVENT DATE: 20180117
